FAERS Safety Report 12160329 (Version 1)
Quarter: 2016Q1

REPORT INFORMATION
  Report Type: Spontaneous
  Country: US (occurrence: US)
  Receive Date: 20160308
  Receipt Date: 20160308
  Transmission Date: 20160526
  Serious: Yes (Hospitalization, Other)
  Sender: FDA-Public Use
  Company Number: US-SHENZHEN TECHDOW PHARMACEUTICAL CO. LTD-US-2016TEC0000012

PATIENT

DRUGS (2)
  1. HEPARIN SODIUM INJECTION USP, PRESERVATIVE FREE [Suspect]
     Active Substance: HEPARIN SODIUM
     Indication: THROMBOSIS PROPHYLAXIS
     Dosage: 5000 UNITS, Q8H
     Route: 058
  2. ALBUTEROL                          /00139501/ [Concomitant]
     Active Substance: ALBUTEROL
     Indication: PRODUCT USED FOR UNKNOWN INDICATION
     Route: 055

REACTIONS (7)
  - Shock haemorrhagic [Recovered/Resolved]
  - Abdominal wall haematoma [Recovered/Resolved]
  - Breast tenderness [Recovered/Resolved]
  - Abdominal distension [Recovered/Resolved]
  - Abdominal tenderness [Recovered/Resolved]
  - Transfusion [Recovered/Resolved]
  - Abdominal pain [Recovered/Resolved]
